FAERS Safety Report 18968525 (Version 3)
Quarter: 2022Q4

REPORT INFORMATION
  Report Type: Report from Study
  Country: US (occurrence: US)
  Receive Date: 20210304
  Receipt Date: 20221206
  Transmission Date: 20230113
  Serious: Yes (Death, Life-Threatening, Hospitalization, Other)
  Sender: FDA-Public Use
  Company Number: US-BOEHRINGERINGELHEIM-2020-BI-045019

PATIENT
  Age: 64 Year
  Sex: Male
  Weight: 64.5 kg

DRUGS (11)
  1. PRADAXA [Suspect]
     Active Substance: DABIGATRAN ETEXILATE MESYLATE
     Indication: Atrial fibrillation
     Route: 048
     Dates: start: 20180906, end: 20200320
  2. PRAXBIND [Suspect]
     Active Substance: IDARUCIZUMAB
     Indication: Product used for unknown indication
     Dates: start: 20200323
  3. ASPIRIN [Concomitant]
     Active Substance: ASPIRIN
     Indication: Product used for unknown indication
     Route: 065
     Dates: start: 20190918
  4. ATORVASTATIN [Concomitant]
     Active Substance: ATORVASTATIN
     Indication: Product used for unknown indication
     Route: 065
     Dates: start: 20191009
  5. CALCIFEDIOL [Concomitant]
     Active Substance: CALCIFEDIOL
     Indication: Product used for unknown indication
     Route: 065
     Dates: start: 20191009
  6. EZETIMIBE [Concomitant]
     Active Substance: EZETIMIBE
     Indication: Product used for unknown indication
     Route: 065
     Dates: start: 20191009
  7. FEBUXOSTAT [Concomitant]
     Active Substance: FEBUXOSTAT
     Indication: Product used for unknown indication
     Route: 065
     Dates: start: 20191009
  8. SOTALOL [Concomitant]
     Active Substance: SOTALOL
     Indication: Product used for unknown indication
     Route: 065
     Dates: start: 20191009
  9. SACUBITRIL\VALSARTAN [Concomitant]
     Active Substance: SACUBITRIL\VALSARTAN
     Indication: Product used for unknown indication
     Route: 065
     Dates: start: 20191009
  10. ESOMEPRAZOLE [Concomitant]
     Active Substance: ESOMEPRAZOLE
     Indication: Product used for unknown indication
     Route: 065
     Dates: start: 20200306
  11. FUROSEMIDE [Concomitant]
     Active Substance: FUROSEMIDE
     Indication: Product used for unknown indication
     Route: 065
     Dates: start: 20191009

REACTIONS (26)
  - Pancreatic carcinoma [Fatal]
  - Multiple organ dysfunction syndrome [Fatal]
  - Pancreatic injury [Fatal]
  - Acute kidney injury [Fatal]
  - Renal tubular necrosis [Recovered/Resolved]
  - Coagulopathy [Recovered/Resolved]
  - Biliary obstruction [Recovered/Resolved]
  - Acute kidney injury [Recovered/Resolved]
  - Gastrointestinal haemorrhage [Recovered/Resolved]
  - Cerebral small vessel ischaemic disease [Unknown]
  - Cerebral dysgenesis [Unknown]
  - Gastritis erosive [Recovered/Resolved]
  - Haematuria [Unknown]
  - Hypotension [Unknown]
  - Pallor [Unknown]
  - Melaena [Unknown]
  - Asthenia [Unknown]
  - Vomiting [Unknown]
  - Proctitis [Recovered/Resolved]
  - Jaundice [Unknown]
  - Procoagulant therapy [Unknown]
  - Haematuria [Unknown]
  - Intestinal polyp [Unknown]
  - Haemorrhoids [Unknown]
  - Urinary tract infection [Unknown]
  - Proctitis [Unknown]

NARRATIVE: CASE EVENT DATE: 20190330
